FAERS Safety Report 10240210 (Version 1)
Quarter: 2014Q2

REPORT INFORMATION
  Report Type: Spontaneous
  Country: DE (occurrence: DE)
  Receive Date: 20140617
  Receipt Date: 20140617
  Transmission Date: 20141212
  Serious: Yes (Other)
  Sender: FDA-Public Use
  Company Number: GXKR2014DE002221

PATIENT
  Age: 73 Year
  Sex: Female

DRUGS (3)
  1. METOPROLOLSUCCINAT 1A PHARMA [Suspect]
     Route: 048
  2. CLOPIDOGREL HYDROCHLORID ? 1 A PHARMA [Suspect]
     Route: 048
  3. TILIDIN RETARD 1A PHARMA [Suspect]
     Route: 048

REACTIONS (5)
  - Haematochezia [Unknown]
  - Peripheral coldness [Unknown]
  - Paraesthesia [Unknown]
  - Abdominal discomfort [Unknown]
  - Fatigue [None]
